FAERS Safety Report 7802820-X (Version None)
Quarter: 2011Q4

REPORT INFORMATION
  Report Type: 
  Country: None (occurrence: None)
  Receive Date: 20111007
  Receipt Date: 20110928
  Transmission Date: 20120403
  Serious: Yes (Hospitalization)
  Sender: FDA-Public Use
  Company Number: GR-MERCK-1109GRC00003

PATIENT
  Age: 30 Month
  Sex: Female

DRUGS (7)
  1. MEROPENEM [Concomitant]
     Indication: RESPIRATORY TRACT INFECTION
     Route: 042
     Dates: start: 20100101
  2. CANCIDAS [Suspect]
     Indication: RESPIRATORY TRACT INFECTION
     Route: 042
     Dates: start: 20100101, end: 20100101
  3. CYTARABINE [Concomitant]
     Indication: ACUTE MYELOID LEUKAEMIA
     Route: 042
     Dates: start: 20100101
  4. IDARUBICIN HYDROCHLORIDE [Concomitant]
     Indication: ACUTE MYELOID LEUKAEMIA
     Route: 042
     Dates: start: 20100101
  5. ETOPOSIDE [Concomitant]
     Indication: ACUTE MYELOID LEUKAEMIA
     Route: 042
     Dates: start: 20100101
  6. AMPHOTERICIN B [Concomitant]
     Indication: RESPIRATORY TRACT INFECTION
     Route: 042
     Dates: start: 20100101, end: 20100101
  7. TEICOPLANIN [Concomitant]
     Indication: RESPIRATORY TRACT INFECTION
     Route: 042
     Dates: start: 20100101

REACTIONS (1)
  - DRUG INEFFECTIVE [None]
